FAERS Safety Report 15172326 (Version 3)
Quarter: 2025Q3

REPORT INFORMATION
  Report Type: Spontaneous
  Country: JP (occurrence: JP)
  Receive Date: 20180720
  Receipt Date: 20250702
  Transmission Date: 20251020
  Serious: Yes (Hospitalization, Other)
  Sender: LUNDBECK
  Company Number: KR-SANOFI-2018SA097519

PATIENT
  Age: 9 Month
  Sex: Female

DRUGS (2)
  1. SABRIL [Suspect]
     Active Substance: VIGABATRIN
     Indication: Infantile spasms
     Dosage: 1200 MG, QD
     Route: 048
     Dates: start: 20171017, end: 2017
  2. CORTICOTROPIN [Suspect]
     Active Substance: CORTICOTROPIN
     Indication: Product used for unknown indication
     Route: 048
     Dates: start: 2017

REACTIONS (13)
  - Bradycardia [Recovering/Resolving]
  - Facial spasm [Recovering/Resolving]
  - Feeding disorder [Recovering/Resolving]
  - Head titubation [Recovering/Resolving]
  - Strabismus [Recovering/Resolving]
  - Ocular dysmetria [Recovering/Resolving]
  - Hyperhidrosis [Recovering/Resolving]
  - Hot flush [Recovering/Resolving]
  - Visual impairment [Recovering/Resolving]
  - Dyskinesia [Recovering/Resolving]
  - Hypertonia [Recovering/Resolving]
  - Infantile spasms [Recovering/Resolving]
  - Magnetic resonance imaging head abnormal [Recovering/Resolving]
